FAERS Safety Report 14192073 (Version 1)
Quarter: 2017Q4

REPORT INFORMATION
  Report Type: Spontaneous
  Country: US (occurrence: US)
  Receive Date: 20171115
  Receipt Date: 20171115
  Transmission Date: 20180321
  Serious: No
  Sender: FDA-Public Use
  Company Number: US-PERRIGO-17US023569

PATIENT
  Age: 29 Year
  Sex: Male
  Weight: 77.98 kg

DRUGS (3)
  1. NICOTINE POLACRILEX [Suspect]
     Active Substance: NICOTINE
     Dosage: 1/2 LOZENGE, SINGLE
     Route: 065
     Dates: start: 20170507, end: 20170507
  2. NICOTINE POLACRILEX [Suspect]
     Active Substance: NICOTINE
     Indication: SMOKING CESSATION THERAPY
     Dosage: 2 MG, EVERY 4 TO 6 HOURS PRN
     Route: 002
     Dates: start: 2017, end: 201704
  3. FLONASE                            /00908302/ [Concomitant]
     Active Substance: MOMETASONE FUROATE
     Indication: RHINITIS ALLERGIC
     Dosage: UNK
     Route: 065

REACTIONS (5)
  - Nausea [Unknown]
  - Drug ineffective [Unknown]
  - Oral disorder [Unknown]
  - Nicotine dependence [Unknown]
  - Wrong technique in product usage process [Recovered/Resolved]

NARRATIVE: CASE EVENT DATE: 2017
